FAERS Safety Report 23512034 (Version 2)
Quarter: 2024Q2

REPORT INFORMATION
  Report Type: Spontaneous
  Country: US (occurrence: US)
  Receive Date: 20240212
  Receipt Date: 20240518
  Transmission Date: 20240716
  Serious: No
  Sender: FDA-Public Use
  Company Number: US-SA-SAC20240203000116

PATIENT
  Age: 60 Year
  Sex: Female

DRUGS (1)
  1. DUPIXENT [Suspect]
     Active Substance: DUPILUMAB
     Indication: Dyshidrotic eczema
     Dosage: 300 MG, QOW
     Route: 058

REACTIONS (10)
  - Dry skin [Recovered/Resolved]
  - Pruritus [Unknown]
  - Oropharyngeal pain [Recovered/Resolved]
  - Ear infection [Unknown]
  - Eye pruritus [Unknown]
  - Arthralgia [Unknown]
  - Dry eye [Unknown]
  - Middle ear effusion [Recovered/Resolved]
  - Eye irritation [Recovered/Resolved]
  - Product use in unapproved indication [Unknown]

NARRATIVE: CASE EVENT DATE: 20240101
